FAERS Safety Report 7568152-2 (Version None)
Quarter: 2011Q2

REPORT INFORMATION
  Report Type: 
  Country: None (occurrence: None)
  Receive Date: 20110616
  Receipt Date: 20110608
  Transmission Date: 20111010
  Serious: Yes (Other)
  Sender: FDA-Public Use
  Company Number: 2011SP020357

PATIENT
  Sex: Female

DRUGS (1)
  1. DESOGESTREL AND ETHINYL ESTRADIOL [Suspect]
     Indication: CONTRACEPTION

REACTIONS (6)
  - MEDICATION ERROR [None]
  - VAGINAL HAEMORRHAGE [None]
  - INAPPROPRIATE SCHEDULE OF DRUG ADMINISTRATION [None]
  - ENTERITIS [None]
  - OLIGOMENORRHOEA [None]
  - INCORRECT DOSE ADMINISTERED [None]
